FAERS Safety Report 11147366 (Version 1)
Quarter: 2015Q2

REPORT INFORMATION
  Report Type: Spontaneous
  Country: GB (occurrence: GB)
  Receive Date: 20150528
  Receipt Date: 20150528
  Transmission Date: 20150821
  Serious: Yes (Other)
  Sender: FDA-Public Use
  Company Number: GB-PAR PHARMACEUTICAL, INC-2015SCPR013994

PATIENT

DRUGS (2)
  1. KETALAR [Suspect]
     Active Substance: KETAMINE HYDROCHLORIDE
     Indication: SUBSTANCE USE
     Dosage: 1-2 G, WEEKLY
     Route: 065
  2. KETALAR [Suspect]
     Active Substance: KETAMINE HYDROCHLORIDE
     Dosage: 10-15 G, / DAY
     Route: 065

REACTIONS (8)
  - Nephrogenic diabetes insipidus [Unknown]
  - Cystitis [Unknown]
  - Ureteric obstruction [Unknown]
  - Renal failure [Unknown]
  - Hydronephrosis [Unknown]
  - Renal impairment [Unknown]
  - Ureteritis [Unknown]
  - Drug abuse [Unknown]
